FAERS Safety Report 21374352 (Version 1)
Quarter: 2022Q3

REPORT INFORMATION
  Report Type: Spontaneous
  Country: IT (occurrence: IT)
  Receive Date: 20220926
  Receipt Date: 20220926
  Transmission Date: 20221027
  Serious: Yes (Hospitalization, Other)
  Sender: FDA-Public Use
  Company Number: IT-ATLANTIDE PHARMACEUTICALS AG-2022ATL000076

PATIENT
  Age: 35 Year
  Sex: Male

DRUGS (2)
  1. CEFTRIAXONE [Suspect]
     Active Substance: CEFTRIAXONE
     Indication: Product used for unknown indication
     Dosage: 1 GM ONCE PER DAY
     Route: 030
  2. AMOXICILLIN\CLAVULANIC ACID [Suspect]
     Active Substance: AMOXICILLIN\CLAVULANIC ACID
     Indication: Product used for unknown indication
     Dosage: 1 GRAM, TID
     Route: 048

REACTIONS (6)
  - Pneumonia mycoplasmal [Recovered/Resolved]
  - Respiratory failure [Recovered/Resolved]
  - Stevens-Johnson syndrome [Recovered/Resolved]
  - Drug ineffective [Unknown]
  - Infection [Recovered/Resolved]
  - Photophobia [Recovered/Resolved]
